FAERS Safety Report 13338397 (Version 1)
Quarter: 2017Q1

REPORT INFORMATION
  Report Type: Spontaneous
  Country: US (occurrence: US)
  Receive Date: 20170315
  Receipt Date: 20170315
  Transmission Date: 20170428
  Serious: Yes (Hospitalization, Other)
  Sender: FDA-Public Use
  Company Number: US-TEVA-748827USA

PATIENT
  Sex: Female

DRUGS (1)
  1. SPRINTEC [Suspect]
     Active Substance: ETHINYL ESTRADIOL\NORGESTIMATE
     Dosage: 0.250 MG/0.035 MG
     Route: 065

REACTIONS (6)
  - Internal haemorrhage [Unknown]
  - Migraine [Unknown]
  - Thrombosis [Unknown]
  - Chest pain [Unknown]
  - Epistaxis [Unknown]
  - Pain in extremity [Unknown]
